FAERS Safety Report 8389262-6 (Version None)
Quarter: 2012Q2

REPORT INFORMATION
  Report Type: 
  Country: None (occurrence: None)
  Receive Date: 20120528
  Receipt Date: 20120521
  Transmission Date: 20120825
  Serious: Yes (Hospitalization, Other)
  Sender: FDA-Public Use
  Company Number: PHHY2012JP039991

PATIENT

DRUGS (7)
  1. PARLODEL [Suspect]
     Indication: PARKINSONISM
     Dosage: 2.5 MG, DAILY
     Route: 048
  2. ASPIRIN [Concomitant]
  3. SEVEN EP [Concomitant]
     Dosage: 3 DF, UNK
     Route: 048
  4. PLETAL [Concomitant]
     Dosage: 2 DF, UNK
     Route: 048
  5. MENEST [Concomitant]
     Dosage: 3 DF, UNK
     Route: 048
  6. BONOTEO [Concomitant]
     Dosage: 1 DF, UNK
     Route: 048
  7. LANSOPRAZOLE [Concomitant]
     Dosage: 1 DF, UNK
     Route: 048

REACTIONS (10)
  - SUDDEN ONSET OF SLEEP [None]
  - HYPOTENSION [None]
  - ELECTROCARDIOGRAM ST SEGMENT ELEVATION [None]
  - CARDIOMEGALY [None]
  - MUSCLE RIGIDITY [None]
  - TACHYCARDIA [None]
  - CARDIAC VALVE DISEASE [None]
  - LOSS OF CONSCIOUSNESS [None]
  - ELECTROCARDIOGRAM T WAVE INVERSION [None]
  - MUSCLE CONTRACTURE [None]
